FAERS Safety Report 7936178-2 (Version None)
Quarter: 2011Q4

REPORT INFORMATION
  Report Type: 
  Country: None (occurrence: None)
  Receive Date: 20111123
  Receipt Date: 20111118
  Transmission Date: 20120403
  Serious: Yes (Other)
  Sender: FDA-Public Use
  Company Number: US-PFIZER INC-2011285388

PATIENT
  Sex: Female

DRUGS (1)
  1. EFFEXOR XR [Suspect]
     Dosage: 37.5 MG, UNK

REACTIONS (3)
  - DYSPHAGIA [None]
  - AMYOTROPHIC LATERAL SCLEROSIS [None]
  - CHOKING [None]
